FAERS Safety Report 5653284-6 (Version None)
Quarter: 2008Q1

REPORT INFORMATION
  Report Type: 
  Country: None (occurrence: None)
  Receive Date: 20080306
  Receipt Date: 20080228
  Transmission Date: 20080703
  Serious: Yes (Other)
  Sender: FDA-Public Use
  Company Number: HQWYE044317DEC04

PATIENT
  Sex: Female

DRUGS (1)
  1. PREMPRO [Suspect]
     Indication: PROPHYLAXIS
     Dosage: UNKNOWN
     Route: 048
     Dates: start: 19960101, end: 20010101

REACTIONS (1)
  - BREAST CANCER METASTATIC [None]
